FAERS Safety Report 19441986 (Version 2)
Quarter: 2022Q4

REPORT INFORMATION
  Report Type: Other
  Country: DE (occurrence: DE)
  Receive Date: 20210621
  Receipt Date: 20221017
  Transmission Date: 20230113
  Serious: Yes (Other)
  Sender: FDA-Public Use
  Company Number: DE-ROCHE-2850177

PATIENT
  Age: 30 Year
  Sex: Male
  Weight: 76 kg

DRUGS (24)
  1. PEGINTERFERON ALFA-2A [Suspect]
     Active Substance: PEGINTERFERON ALFA-2A
     Indication: Chronic hepatitis C
     Route: 058
     Dates: start: 20120524, end: 20130425
  2. PEGINTERFERON ALFA-2A [Suspect]
     Active Substance: PEGINTERFERON ALFA-2A
     Route: 058
     Dates: start: 20130425
  3. RIBAVIRIN [Suspect]
     Active Substance: RIBAVIRIN
     Indication: Chronic hepatitis C
     Dosage: CUMULATIVE DOSE TO FIRST REACTION: 103473.69 MG?800 MG, QD
     Route: 048
     Dates: start: 20120803, end: 20130425
  4. RIBAVIRIN [Suspect]
     Active Substance: RIBAVIRIN
     Dosage: CUMULATIVE DOSE TO FIRST REACTION: 103473.69 MG?1000 MG, QD
     Route: 048
     Dates: start: 20120524, end: 20120802
  5. RIBAVIRIN [Suspect]
     Active Substance: RIBAVIRIN
     Route: 065
     Dates: start: 20120803, end: 20130425
  6. TRUVADA [Suspect]
     Active Substance: EMTRICITABINE\TENOFOVIR DISOPROXIL FUMARATE
     Indication: HIV infection
     Dosage: MOST RECENT DOSE ADMINISTERED ON 20/JUL/2016
     Route: 048
     Dates: start: 20100101
  7. TRUVADA [Suspect]
     Active Substance: EMTRICITABINE\TENOFOVIR DISOPROXIL FUMARATE
     Route: 048
     Dates: start: 20160720
  8. TENOFOVIR [Suspect]
     Active Substance: TENOFOVIR
     Indication: HIV infection
     Dosage: CUMULATIVE DOSE TO FIRST REACTION: 174926.88 MG?200 MG, QD
     Route: 048
     Dates: start: 20100101, end: 20160720
  9. REYATAZ [Suspect]
     Active Substance: ATAZANAVIR SULFATE
     Indication: HIV infection
     Route: 048
     Dates: start: 20100101
  10. REYATAZ [Suspect]
     Active Substance: ATAZANAVIR SULFATE
     Route: 048
     Dates: start: 20160720
  11. REYATAZ [Suspect]
     Active Substance: ATAZANAVIR SULFATE
     Route: 048
     Dates: start: 20120524, end: 20120802
  12. REYATAZ [Suspect]
     Active Substance: ATAZANAVIR SULFATE
     Route: 048
     Dates: start: 20120803, end: 20130425
  13. REYATAZ [Suspect]
     Active Substance: ATAZANAVIR SULFATE
     Dosage: MOST RECENT DOSE ON 20/7/2016, CUMULATIVE DOSE TO FIRST REACTION: 262500 MG 300 MG, QD
     Route: 065
     Dates: start: 20200101
  14. TELAPREVIR [Suspect]
     Active Substance: TELAPREVIR
     Indication: Chronic hepatitis C
     Dosage: MOST RECENT DOSE ON: 16/AUG/2012
     Route: 048
     Dates: start: 20120524
  15. TELAPREVIR [Suspect]
     Active Substance: TELAPREVIR
     Route: 048
     Dates: start: 20120816
  16. NORVIR [Suspect]
     Active Substance: RITONAVIR
     Indication: HIV infection
     Route: 048
     Dates: start: 2013
  17. NORVIR [Suspect]
     Active Substance: RITONAVIR
     Dosage: CUMULATIVE DOSE TO FIRST REACTION: 98658.76 MG 100 MG, QD
     Route: 048
     Dates: start: 20100101
  18. NORVIR [Suspect]
     Active Substance: RITONAVIR
     Route: 048
     Dates: start: 2013, end: 20160720
  19. NORVIR [Suspect]
     Active Substance: RITONAVIR
     Route: 048
     Dates: end: 2013
  20. EMTRICITABINE [Suspect]
     Active Substance: EMTRICITABINE
     Indication: HIV infection
     Dosage: CUMULATIVE DOSE TO FIRST REACTION: 174926.88 MG?200 MG, QD
     Route: 048
     Dates: start: 20100101, end: 20160720
  21. ACETYLCYSTEINE [Concomitant]
     Active Substance: ACETYLCYSTEINE
     Indication: Product used for unknown indication
     Dosage: DOSAGE FORM: UNSPECIFIED
     Route: 065
     Dates: start: 20130314
  22. SUBUTEX [Concomitant]
     Active Substance: BUPRENORPHINE HYDROCHLORIDE
     Indication: Product used for unknown indication
     Dosage: DOSAGE FORM: UNSPECIFIED
     Route: 065
  23. AZITHROMYCIN [Concomitant]
     Active Substance: AZITHROMYCIN
     Indication: Product used for unknown indication
     Route: 065
     Dates: start: 20130603, end: 20130605
  24. ACETYLCYSTEINE [Concomitant]
     Active Substance: ACETYLCYSTEINE
     Indication: Product used for unknown indication
     Dosage: 600 MG, UNK
     Route: 065
     Dates: start: 20130314

REACTIONS (23)
  - Nasopharyngitis [Recovered/Resolved]
  - Alanine aminotransferase increased [Not Recovered/Not Resolved]
  - Restlessness [Recovered/Resolved]
  - Headache [Recovered/Resolved]
  - Influenza like illness [Recovered/Resolved]
  - Dry skin [Not Recovered/Not Resolved]
  - Depressed mood [Not Recovered/Not Resolved]
  - Drug dependence [Not Recovered/Not Resolved]
  - Taste disorder [Not Recovered/Not Resolved]
  - Vertigo [Recovered/Resolved]
  - Wrong dose [Unknown]
  - Impaired healing [Recovered/Resolved]
  - Pruritus [Not Recovered/Not Resolved]
  - Fatigue [Recovered/Resolved]
  - Oral herpes [Recovered/Resolved]
  - Sinusitis [Recovered/Resolved]
  - Dizziness [Recovered/Resolved]
  - Anaemia [Not Recovered/Not Resolved]
  - Skin irritation [Not Recovered/Not Resolved]
  - Withdrawal syndrome [Not Recovered/Not Resolved]
  - Nausea [Not Recovered/Not Resolved]
  - Incorrect dose administered [Unknown]
  - Alanine aminotransferase increased [Not Recovered/Not Resolved]

NARRATIVE: CASE EVENT DATE: 20120524
